FAERS Safety Report 7087919-0 (Version None)
Quarter: 2010Q4

REPORT INFORMATION
  Report Type: 
  Country: None (occurrence: None)
  Receive Date: 20101108
  Receipt Date: 20101025
  Transmission Date: 20110411
  Serious: Yes (Hospitalization)
  Sender: FDA-Public Use
  Company Number: GB-US-EMD SERONO, INC.-230305J10GBR

PATIENT
  Sex: Female

DRUGS (1)
  1. REBIF [Suspect]
     Indication: PRODUCT USED FOR UNKNOWN INDICATION
     Dates: start: 20080501, end: 20101018

REACTIONS (8)
  - DIABETES MELLITUS INADEQUATE CONTROL [None]
  - FALL [None]
  - GAIT DISTURBANCE [None]
  - GASTRIC INFECTION [None]
  - INFECTION [None]
  - MOBILITY DECREASED [None]
  - MUSCLE SPASMS [None]
  - MUSCLE SPASTICITY [None]
